FAERS Safety Report 19704727 (Version 2)
Quarter: 2021Q3

REPORT INFORMATION
  Report Type: Spontaneous
  Country: US (occurrence: US)
  Receive Date: 20210816
  Receipt Date: 20210928
  Transmission Date: 20211014
  Serious: Yes (Other)
  Sender: FDA-Public Use
  Company Number: US-PFIZER INC-202100990198

PATIENT
  Age: 56 Year
  Sex: Female
  Weight: 96.6 kg

DRUGS (11)
  1. FLONASE ALLERGY RELIEF [Concomitant]
     Active Substance: FLUTICASONE PROPIONATE
     Dosage: 50 MCG SPRAY
  2. IBRANCE [Suspect]
     Active Substance: PALBOCICLIB
     Indication: BREAST CANCER FEMALE
     Dosage: 125 MG DAILY X 21 DAYS
     Dates: start: 20210512
  3. XGEVA [Concomitant]
     Active Substance: DENOSUMAB
     Dosage: 120 MG/1.7 VIAL
  4. METAMUCIL [Concomitant]
     Active Substance: PLANTAGO SEED
     Dosage: 3.4G/11G POWDER
  5. IBRANCE [Suspect]
     Active Substance: PALBOCICLIB
     Dosage: UNK
  6. ATIVAN [Concomitant]
     Active Substance: LORAZEPAM
     Dosage: 0.5 MG
  7. MUCINEX [Concomitant]
     Active Substance: GUAIFENESIN
     Dosage: 1200 MG, PER 12H
  8. IBUPROFEN. [Concomitant]
     Active Substance: IBUPROFEN
     Dosage: 600 MG
  9. IRON [Concomitant]
     Active Substance: IRON
     Dosage: 45 MG
  10. VITAMIN D NOS [Concomitant]
     Active Substance: VITAMIN D NOS
     Dosage: 10 UG
  11. ANASTROZOLE. [Concomitant]
     Active Substance: ANASTROZOLE
     Dosage: 1 MG

REACTIONS (14)
  - Pneumonia [Unknown]
  - Breast tenderness [Unknown]
  - Vision blurred [Unknown]
  - Pulmonary thrombosis [Unknown]
  - Gastrointestinal motility disorder [Unknown]
  - Flatulence [Unknown]
  - Dyschromatopsia [Unknown]
  - Peripheral coldness [Unknown]
  - Cancer pain [Unknown]
  - Pleural effusion [Unknown]
  - Dyspnoea [Unknown]
  - Constipation [Unknown]
  - Swelling [Unknown]
  - Chest discomfort [Unknown]
